FAERS Safety Report 21954486 (Version 1)
Quarter: 2023Q1

REPORT INFORMATION
  Report Type: Spontaneous
  Country: AU (occurrence: AU)
  Receive Date: 20230205
  Receipt Date: 20230205
  Transmission Date: 20230418
  Serious: Yes (Hospitalization, Other)
  Sender: FDA-Public Use
  Company Number: AU-CIPLA LTD.-2023AU00798

PATIENT

DRUGS (3)
  1. ESCITALOPRAM [Suspect]
     Active Substance: ESCITALOPRAM OXALATE
     Indication: Anxiety
     Dosage: UNK
     Route: 065
     Dates: start: 20210927, end: 202201
  2. TOZINAMERAN [Suspect]
     Active Substance: TOZINAMERAN
     Indication: Product used for unknown indication
     Dosage: UNK
     Route: 065
     Dates: start: 202108
  3. TOZINAMERAN [Suspect]
     Active Substance: TOZINAMERAN
     Dosage: UNK
     Route: 065
     Dates: start: 202109

REACTIONS (31)
  - Chills [Not Recovered/Not Resolved]
  - Pain [Not Recovered/Not Resolved]
  - Feeling cold [Unknown]
  - Body temperature fluctuation [Unknown]
  - Neuralgia [Unknown]
  - Palpitations [Unknown]
  - Chest pain [Not Recovered/Not Resolved]
  - Feeling abnormal [Unknown]
  - Dysphagia [Unknown]
  - Muscle twitching [Unknown]
  - Hypoaesthesia [Unknown]
  - Migraine with aura [Unknown]
  - Headache [Not Recovered/Not Resolved]
  - Panic attack [Unknown]
  - Tremor [Unknown]
  - Pericarditis [Unknown]
  - Electrocardiogram abnormal [Unknown]
  - Injection site pruritus [Unknown]
  - Burning sensation [Unknown]
  - Sensation of foreign body [Unknown]
  - Renal pain [Unknown]
  - Concomitant disease aggravated [Unknown]
  - Dyspepsia [Unknown]
  - Pain in extremity [Unknown]
  - Dyspnoea [Unknown]
  - Disorientation [Recovered/Resolved]
  - Gastrooesophageal reflux disease [Unknown]
  - Serotonin syndrome [Unknown]
  - Dizziness [Unknown]
  - Tinnitus [Unknown]
  - Paraesthesia [Unknown]

NARRATIVE: CASE EVENT DATE: 20210801
